FAERS Safety Report 5055996-4 (Version None)
Quarter: 2006Q3

REPORT INFORMATION
  Report Type: 
  Country: None (occurrence: None)
  Receive Date: 20060720
  Receipt Date: 20060711
  Transmission Date: 20061208
  Serious: Yes (Hospitalization)
  Sender: FDA-Public Use
  Company Number: PHRM2006FR02055

PATIENT
  Age: 60 Year
  Sex: Male

DRUGS (6)
  1. DOLI RHUME [Suspect]
     Indication: RHINORRHOEA
     Route: 048
     Dates: start: 20060315, end: 20060330
  2. DOMPERIDONE [Suspect]
     Dosage: 10 MG, TID
     Route: 048
     Dates: start: 20060201, end: 20060331
  3. TETANUS VACCINE [Suspect]
     Indication: TETANUS IMMUNISATION
     Route: 058
     Dates: start: 20060320, end: 20060320
  4. NISIS [Suspect]
     Indication: HYPERTENSION
     Route: 048
     Dates: start: 20060215, end: 20060404
  5. CONTINUOUS POSITIVE AIRWAY PRESSURE [Concomitant]
     Indication: SLEEP APNOEA SYNDROME
  6. NIFLURIL [Suspect]
     Indication: MYALGIA
     Dosage: UNK, UNK
     Route: 059
     Dates: start: 20060320

REACTIONS (7)
  - ALANINE AMINOTRANSFERASE INCREASED [None]
  - BLOOD BILIRUBIN UNCONJUGATED INCREASED [None]
  - CHROMATURIA [None]
  - EOSINOPHIL COUNT INCREASED [None]
  - HAEMOLYTIC ANAEMIA [None]
  - RETICULOCYTE COUNT INCREASED [None]
  - SERUM FERRITIN INCREASED [None]
